FAERS Safety Report 24436137 (Version 1)
Quarter: 2024Q4

REPORT INFORMATION
  Report Type: Spontaneous
  Country: FR (occurrence: FR)
  Receive Date: 20241015
  Receipt Date: 20241015
  Transmission Date: 20250115
  Serious: Yes (Hospitalization, Other)
  Sender: AUROBINDO
  Company Number: FR-AFSSAPS-AVMP2024000267

PATIENT
  Age: 43 Year
  Sex: Male

DRUGS (4)
  1. TRAMADOL [Suspect]
     Active Substance: TRAMADOL
     Indication: Product used for unknown indication
     Dosage: GREATER THAN 100MG/DAY
     Route: 065
     Dates: start: 2002
  2. SUBUTEX [Suspect]
     Active Substance: BUPRENORPHINE HYDROCHLORIDE
     Indication: Product used for unknown indication
     Dosage: DIVIDED INTO 3 DAILY DOSES OF 8MG
     Route: 065
     Dates: start: 202312, end: 20240924
  3. OXAZEPAM [Suspect]
     Active Substance: OXAZEPAM
     Indication: Product used for unknown indication
     Dosage: 200 MILLIGRAM, ONCE A DAY
     Route: 065
     Dates: start: 1997, end: 20240521
  4. OXAZEPAM [Suspect]
     Active Substance: OXAZEPAM
     Dosage: 150 MILLIGRAM, ONCE A DAY
     Route: 048
     Dates: start: 20240522

REACTIONS (1)
  - Drug use disorder [Unknown]

NARRATIVE: CASE EVENT DATE: 20231201
